FAERS Safety Report 12760289 (Version 6)
Quarter: 2018Q2

REPORT INFORMATION
  Report Type: Report from Study
  Country: US (occurrence: US)
  Receive Date: 20160919
  Receipt Date: 20180613
  Transmission Date: 20180711
  Serious: No
  Sender: FDA-Public Use
  Company Number: GXBR2016US002492

PATIENT
  Age: 44 Year
  Sex: Female
  Weight: 58.96 kg

DRUGS (2)
  1. GLATOPA [Suspect]
     Active Substance: GLATIRAMER ACETATE
     Dosage: 20 MG, QD
     Route: 058
     Dates: start: 20160802
  2. GLATOPA [Suspect]
     Active Substance: GLATIRAMER ACETATE
     Indication: MULTIPLE SCLEROSIS
     Dosage: 20 MG, QD
     Route: 058
     Dates: start: 20160802

REACTIONS (6)
  - Injection site pain [Not Recovered/Not Resolved]
  - Incorrect dose administered by device [Not Recovered/Not Resolved]
  - Dizziness [Not Recovered/Not Resolved]
  - Rash papular [Not Recovered/Not Resolved]
  - Dysgeusia [Not Recovered/Not Resolved]
  - Device malfunction [Not Recovered/Not Resolved]

NARRATIVE: CASE EVENT DATE: 20160802
